FAERS Safety Report 8857478 (Version 2)
Quarter: 2013Q1

REPORT INFORMATION
  Report Type: Spontaneous
  Country: US (occurrence: US)
  Receive Date: 20121024
  Receipt Date: 20130214
  Transmission Date: 20140127
  Serious: No
  Sender: FDA-Public Use
  Company Number: US-ASTRAZENECA-2012SE80216

PATIENT
  Age: 86 Year
  Sex: Female

DRUGS (2)
  1. ARIMIDEX [Suspect]
     Dosage: GENERIC
     Route: 048
  2. ARIMIDEX [Suspect]
     Route: 048

REACTIONS (4)
  - Feeling abnormal [Unknown]
  - Malaise [Unknown]
  - Malaise [Unknown]
  - Drug dose omission [Unknown]
